FAERS Safety Report 7979988-8 (Version None)
Quarter: 2011Q4

REPORT INFORMATION
  Report Type: 
  Country: None (occurrence: None)
  Receive Date: 20111214
  Receipt Date: 20111201
  Transmission Date: 20120403
  Serious: Yes (Other)
  Sender: FDA-Public Use
  Company Number: PHEH2009US13791

PATIENT
  Sex: Female

DRUGS (2)
  1. GLEEVEC [Suspect]
     Indication: CHRONIC MYELOID LEUKAEMIA
     Dosage: 400 MG, QD
     Route: 048
  2. GLEEVEC [Suspect]
     Dosage: 200 MG, QD
     Route: 048
     Dates: start: 20090917

REACTIONS (9)
  - GOUT [None]
  - SKIN DISORDER [None]
  - TREMOR [None]
  - DIARRHOEA [None]
  - ABDOMINAL PAIN [None]
  - ALOPECIA [None]
  - SWOLLEN TONGUE [None]
  - HERPES ZOSTER [None]
  - NAUSEA [None]
